FAERS Safety Report 9403412 (Version 1)
Quarter: 2013Q3

REPORT INFORMATION
  Report Type: Spontaneous
  Country: CN (occurrence: CN)
  Receive Date: 20130716
  Receipt Date: 20130716
  Transmission Date: 20140515
  Serious: Yes (Other)
  Sender: FDA-Public Use
  Company Number: CN-BAXTER-2013BAX026720

PATIENT
  Age: 37 Year
  Sex: Male
  Weight: 60 kg

DRUGS (2)
  1. 20% MANNITOL INJECTION [Suspect]
     Indication: OEDEMA
     Dosage: 100 DROPS/MIN
     Route: 041
     Dates: start: 20121028, end: 20121102
  2. 20% MANNITOL INJECTION [Suspect]
     Dosage: 100 DROPS/MIN
     Route: 041
     Dates: start: 20121102

REACTIONS (2)
  - Rash [Recovered/Resolved]
  - Pruritus [Recovered/Resolved]
